FAERS Safety Report 4511422-2 (Version None)
Quarter: 2004Q4

REPORT INFORMATION
  Report Type: 
  Country: None (occurrence: None)
  Receive Date: 20041129
  Receipt Date: 20040806
  Transmission Date: 20050328
  Serious: Yes (Hospitalization)
  Sender: FDA-Public Use
  Company Number: US-BRISTOL-MYERS SQUIBB COMPANY-12663399

PATIENT
  Age: 49 Year
  Sex: Male
  Weight: 84 kg

DRUGS (3)
  1. ABILIFY [Suspect]
     Indication: SCHIZOAFFECTIVE DISORDER
     Dosage: 5 MG, THEN 10 MG, THEN D/C, THEN 5 MG, THEN 10 MG - CONTINUES
     Route: 048
     Dates: start: 20040101
  2. LITHIUM CARBONATE [Concomitant]
  3. CLONIDINE [Concomitant]

REACTIONS (1)
  - DIZZINESS [None]
